FAERS Safety Report 7878502-5 (Version None)
Quarter: 2011Q4

REPORT INFORMATION
  Report Type: 
  Country: None (occurrence: None)
  Receive Date: 20111028
  Receipt Date: 20111020
  Transmission Date: 20120403
  Serious: Yes (Death)
  Sender: FDA-Public Use
  Company Number: DKLU1074149

PATIENT
  Age: 12 Year
  Sex: Female

DRUGS (7)
  1. ZONEGRAN [Concomitant]
  2. ASTELIN (DIPROPHYLLINE) (NASAL SPRAY) [Concomitant]
  3. SINGULAIR [Concomitant]
  4. MIRALAX [Concomitant]
  5. PREVACID [Concomitant]
  6. SABRIL [Suspect]
     Indication: GRAND MAL CONVULSION
     Dosage: 1250 MG MILLIGRAM(S), 3 IN 1 D, ORAL 1500 MG MILLIGRAM(S), 3 IN 1 D, ORAL
     Route: 048
     Dates: start: 20111001
  7. SABRIL [Suspect]
     Indication: GRAND MAL CONVULSION
     Dosage: 1250 MG MILLIGRAM(S), 3 IN 1 D, ORAL 1500 MG MILLIGRAM(S), 3 IN 1 D, ORAL
     Route: 048
     Dates: start: 20110207, end: 20111001

REACTIONS (1)
  - DEATH [None]
